FAERS Safety Report 12137356 (Version 1)
Quarter: 2016Q1

REPORT INFORMATION
  Report Type: Spontaneous
  Country: CA (occurrence: CA)
  Receive Date: 20160302
  Receipt Date: 20160302
  Transmission Date: 20160526
  Serious: Yes (Other)
  Sender: FDA-Public Use
  Company Number: CA-TEVA-639677ACC

PATIENT
  Age: 88 Year
  Sex: Male

DRUGS (3)
  1. DUTASTERIDE. [Concomitant]
     Active Substance: DUTASTERIDE
  2. TAMSULOSIN CR [Suspect]
     Active Substance: TAMSULOSIN
     Indication: URINARY INCONTINENCE
     Dosage: 1 DOSAGE FORMS DAILY;
     Route: 048
  3. EURO-LAC [Concomitant]

REACTIONS (2)
  - Choking sensation [Recovered/Resolved]
  - Dyspnoea [Recovered/Resolved]
